FAERS Safety Report 10640223 (Version 1)
Quarter: 2014Q4

REPORT INFORMATION
  Report Type: Spontaneous
  Country: JP (occurrence: None)
  Receive Date: 20141205
  Receipt Date: 20141205
  Transmission Date: 20150529
  Serious: Yes (Hospitalization)
  Sender: FDA-Public Use
  Company Number: JP-017893

PATIENT
  Age: 72 Year
  Sex: Male
  Weight: 58 kg

DRUGS (6)
  1. RANMARK [Suspect]
     Active Substance: DENOSUMAB
     Indication: METASTASES TO BONE
     Route: 058
     Dates: start: 20140917
  2. BROTIZOLAM [Concomitant]
     Active Substance: BROTIZOLAM
  3. CASODEX [Concomitant]
     Active Substance: BICALUTAMIDE
  4. DEGARELIX (GONAX) 80 MG [Suspect]
     Active Substance: DEGARELIX
     Indication: PROSTATE CANCER
     Route: 058
     Dates: start: 20140917
  5. ALFAROL [Concomitant]
     Active Substance: ALFACALCIDOL
  6. ASPARA-CA [Concomitant]
     Active Substance: CALCIUM ASPARTATE

REACTIONS (2)
  - Intentional product use issue [None]
  - Interstitial lung disease [None]

NARRATIVE: CASE EVENT DATE: 20140917
